FAERS Safety Report 9388106 (Version 4)
Quarter: 2013Q3

REPORT INFORMATION
  Report Type: Report from Study
  Country: JP (occurrence: JP)
  Receive Date: 20130708
  Receipt Date: 20130909
  Transmission Date: 20140515
  Serious: Yes (Hospitalization)
  Sender: FDA-Public Use
  Company Number: JP-ABBOTT-13P-087-1114313-00

PATIENT
  Sex: Male
  Weight: 69.5 kg

DRUGS (9)
  1. HUMIRA [Suspect]
     Indication: CROHN^S DISEASE
     Route: 058
     Dates: start: 20121225, end: 20121225
  2. HUMIRA [Suspect]
     Dates: start: 20130110, end: 20130110
  3. HUMIRA [Suspect]
     Dates: start: 20130131, end: 20130318
  4. HUMIRA [Suspect]
     Dates: start: 20130502
  5. AZATHIOPRINE [Concomitant]
     Indication: CROHN^S DISEASE
     Route: 048
  6. MESALAZINE [Concomitant]
     Indication: CROHN^S DISEASE
     Route: 048
  7. LACTOMIN [Concomitant]
     Indication: CROHN^S DISEASE
     Route: 048
  8. LOXOPROFEN SODIUM [Concomitant]
     Indication: PRODUCT USED FOR UNKNOWN INDICATION
     Route: 048
  9. TEPRENONE [Concomitant]
     Indication: PRODUCT USED FOR UNKNOWN INDICATION
     Route: 048

REACTIONS (3)
  - Small intestinal stenosis [Recovered/Resolved]
  - C-reactive protein increased [Recovered/Resolved]
  - Ileus [Unknown]
